FAERS Safety Report 7020531-8 (Version None)
Quarter: 2010Q3

REPORT INFORMATION
  Report Type: 
  Country: None (occurrence: None)
  Receive Date: 20100929
  Receipt Date: 20100920
  Transmission Date: 20110219
  Serious: Yes (Death, Hospitalization)
  Sender: FDA-Public Use
  Company Number: DE-ROCHE-729607

PATIENT
  Age: 50 Year
  Sex: Male

DRUGS (1)
  1. ROACTEMRA [Suspect]
     Indication: RHEUMATOID ARTHRITIS
     Dosage: SINGLE DOSE
     Route: 042
     Dates: start: 20100819

REACTIONS (2)
  - BASILAR ARTERY THROMBOSIS [None]
  - SUBARACHNOID HAEMORRHAGE [None]
